FAERS Safety Report 7450837-X (Version None)
Quarter: 2011Q2

REPORT INFORMATION
  Report Type: 
  Country: None (occurrence: None)
  Receive Date: 20110502
  Receipt Date: 20110422
  Transmission Date: 20111010
  Serious: Yes (Death, Other)
  Sender: FDA-Public Use
  Company Number: JP-CELGENEUS-087-21880-11020309

PATIENT
  Sex: Male

DRUGS (15)
  1. LOXONIN [Concomitant]
     Dosage: 180 MILLIGRAM
     Route: 048
     Dates: start: 20100928, end: 20101227
  2. GOSHA-JINKI-GAN [Concomitant]
     Dosage: 7.5 GRAM
     Route: 048
     Dates: start: 20100928, end: 20101031
  3. LENADEX [Suspect]
     Indication: MULTIPLE MYELOMA
     Dosage: 40 MILLIGRAM
     Route: 048
     Dates: start: 20100928, end: 20101019
  4. MAGNESIUM OXIDE [Concomitant]
     Dosage: 1.5 GRAM
     Route: 048
     Dates: start: 20100928
  5. REVLIMID [Suspect]
     Dosage: 25 MILLIGRAM
     Route: 048
     Dates: start: 20101123, end: 20101213
  6. LENADEX [Suspect]
     Dosage: 40 MILLIGRAM
     Route: 048
     Dates: start: 20101026, end: 20101116
  7. BACTRIM [Concomitant]
     Dosage: 4 TABLET
     Route: 048
     Dates: start: 20100928, end: 20101224
  8. DUROTEP [Concomitant]
     Dosage: 2.1 MILLIGRAM
     Route: 062
     Dates: start: 20101228, end: 20101230
  9. DOMPERIDONE [Concomitant]
     Dosage: 30 MILLIGRAM
     Route: 048
     Dates: start: 20100928, end: 20101031
  10. METHYCOBAL [Concomitant]
     Dosage: 1500 MICROGRAM
     Route: 048
     Dates: start: 20100928, end: 20101227
  11. URSO 250 [Concomitant]
     Dosage: 600 MILLIGRAM
     Route: 048
     Dates: start: 20100928, end: 20101227
  12. REVLIMID [Suspect]
     Indication: MULTIPLE MYELOMA
     Dosage: 25 MILLIGRAM
     Route: 048
     Dates: start: 20100928, end: 20101018
  13. REVLIMID [Suspect]
     Dosage: 25 MILLIGRAM
     Route: 048
     Dates: start: 20101026, end: 20101115
  14. LENADEX [Suspect]
     Dosage: 40 MILLIGRAM
     Route: 048
     Dates: start: 20101123, end: 20101214
  15. OXYCONTIN [Concomitant]
     Dosage: 20 MILLIGRAM
     Route: 048
     Dates: start: 20100928, end: 20101227

REACTIONS (5)
  - PNEUMONIA [None]
  - SYSTEMIC CANDIDA [None]
  - SEPSIS [None]
  - RENAL FAILURE [None]
  - HEPATIC FUNCTION ABNORMAL [None]
